FAERS Safety Report 4910905-0 (Version None)
Quarter: 2006Q1

REPORT INFORMATION
  Report Type: 
  Country: None (occurrence: None)
  Receive Date: 20060214
  Receipt Date: 20060116
  Transmission Date: 20060701
  Serious: Yes (Hospitalization)
  Sender: FDA-Public Use
  Company Number: FR-NOVOPROD-250059

PATIENT
  Age: 49 Year
  Sex: Male

DRUGS (6)
  1. NOVONORM [Suspect]
     Indication: DIABETES MELLITUS
     Dosage: 3 MG, QD
     Route: 048
     Dates: start: 20051012, end: 20051118
  2. RULID [Concomitant]
     Dates: start: 20051020, end: 20051027
  3. ZOLOFT [Concomitant]
     Indication: DEPRESSION
     Dosage: 1 UNK, UNK
     Route: 048
  4. GLUCOR [Concomitant]
     Indication: DIABETES MELLITUS
  5. DAFLON [Concomitant]
     Indication: SKIN ULCER
     Dosage: 1000 MG, QD
  6. SEREVENT [Concomitant]
     Indication: ASTHMA
     Dosage: 100 RG
     Route: 055

REACTIONS (3)
  - ESCHERICHIA URINARY TRACT INFECTION [None]
  - LEUKOCYTOCLASTIC VASCULITIS [None]
  - VASCULAR PURPURA [None]
